FAERS Safety Report 4375321-1 (Version None)
Quarter: 2004Q2

REPORT INFORMATION
  Report Type: 
  Country: None (occurrence: None)
  Receive Date: 20040608
  Receipt Date: 20040604
  Transmission Date: 20050107
  Serious: Yes (Hospitalization)
  Sender: FDA-Public Use
  Company Number: 04-06-0804

PATIENT
  Age: 56 Year
  Sex: Female

DRUGS (1)
  1. CLOZAPINE [Suspect]
     Indication: SCHIZOPHRENIA
     Dosage: 200-700 MG QD ORAL
     Route: 048
     Dates: start: 19991101

REACTIONS (1)
  - CARDIOVASCULAR DISORDER [None]
